FAERS Safety Report 17085383 (Version 2)
Quarter: 2019Q4

REPORT INFORMATION
  Report Type: Spontaneous
  Country: SE (occurrence: SE)
  Receive Date: 20191128
  Receipt Date: 20191212
  Transmission Date: 20200122
  Serious: Yes (Death, Hospitalization, Other)
  Sender: FDA-Public Use
  Company Number: SE-AUROBINDO-AUR-APL-2019-075365

PATIENT
  Sex: Male

DRUGS (3)
  1. NAPROXEN. [Suspect]
     Active Substance: NAPROXEN
     Indication: ERYTHEMA
     Dosage: UNK, SINGLE DOSE
     Route: 065
  2. NAPROXEN. [Suspect]
     Active Substance: NAPROXEN
     Indication: ARTHRALGIA
     Dosage: UNK
     Route: 065
  3. NAPROXEN. [Suspect]
     Active Substance: NAPROXEN
     Indication: JOINT SWELLING
     Dosage: UNK
     Route: 065

REACTIONS (4)
  - Hypersensitivity [Fatal]
  - Contraindicated product administered [Fatal]
  - Dyspnoea [Fatal]
  - Cardiac arrest [Fatal]
